FAERS Safety Report 9496668 (Version 2)
Quarter: 2013Q3

REPORT INFORMATION
  Report Type: Spontaneous
  Country: JP (occurrence: None)
  Receive Date: 20130828
  Receipt Date: 20130920
  Transmission Date: 20140515
  Serious: Yes (Hospitalization)
  Sender: FDA-Public Use
  Company Number: TCI2013A03034

PATIENT
  Age: 86 Year
  Sex: Female

DRUGS (10)
  1. LANSAP 800 [Suspect]
     Indication: HELICOBACTER INFECTION
     Dosage: 1 CARD (0.5CARD, 2 IN 1D)
     Route: 048
     Dates: start: 20130409, end: 20130416
  2. ADALAT CR (NIFEDIPINE) TABLET [Concomitant]
  3. MICARDIS (TELMISARTAN) TABLET [Concomitant]
  4. LASIX (FUROSEMIDE) TABLET [Concomitant]
  5. TANATRIL (IMIDAPRIL HYDROCHLORIDE) TABLET [Concomitant]
  6. MAINTATE (BISOPROLOL FUMARATE) TABLET [Concomitant]
  7. NITOROL R (ISOSORBID DINITRATE) CAPSULE [Concomitant]
  8. MAGNESIUM OXIDE (MAGNESIUM OXIDE) ORAL DRUG UNSPECIFIED FORM; UNKNOWN [Concomitant]
  9. AZULENE (AZULENE) ORAL DRUG UNSPECIFIED FORM; UNKNOWN [Concomitant]
  10. DEP;AS (ETIZOLAM) TABLET [Concomitant]

REACTIONS (8)
  - Sinus bradycardia [None]
  - Renal failure [None]
  - Dizziness [None]
  - Decreased appetite [None]
  - Pleural effusion [None]
  - Blood sodium decreased [None]
  - Blood potassium increased [None]
  - Acidosis [None]
